FAERS Safety Report 22088852 (Version 1)
Quarter: 2023Q1

REPORT INFORMATION
  Report Type: Spontaneous
  Country: US (occurrence: None)
  Receive Date: 20230310
  Receipt Date: 20230310
  Transmission Date: 20230417
  Serious: No
  Sender: FDA-Public Use
  Company Number: None

PATIENT
  Age: 57 Year
  Sex: Male
  Weight: 93.9 kg

DRUGS (2)
  1. ROCURONIUM [Suspect]
     Active Substance: ROCURONIUM BROMIDE
     Indication: Hip arthroplasty
     Dosage: OTHER FREQUENCY : PER PROCEDURE;?
     Route: 040
     Dates: start: 20230309, end: 20230309
  2. ROCURONIUM [Suspect]
     Active Substance: ROCURONIUM BROMIDE
     Indication: Hip arthroplasty
     Dosage: FREQUENCY : AS NEEDED;?
     Route: 040
     Dates: start: 20230309, end: 20230309

REACTIONS (3)
  - Anaesthetic complication [None]
  - Endotracheal intubation complication [None]
  - Vocal cord disorder [None]

NARRATIVE: CASE EVENT DATE: 20230309
